FAERS Safety Report 6209960-X (Version None)
Quarter: 2009Q2

REPORT INFORMATION
  Report Type: 
  Country: None (occurrence: None)
  Receive Date: 20090529
  Receipt Date: 20090529
  Transmission Date: 20091009
  Serious: Yes (Life-Threatening)
  Sender: FDA-Public Use
  Company Number: None

PATIENT
  Sex: Female
  Weight: 64 kg

DRUGS (1)
  1. FLAGYL [Suspect]
     Indication: GASTROINTESTINAL DISORDER
     Dosage: 500 MG IV
     Route: 042
     Dates: start: 20090327

REACTIONS (1)
  - DYSPNOEA [None]
